FAERS Safety Report 9170679 (Version 1)
Quarter: 2013Q1

REPORT INFORMATION
  Report Type: Spontaneous
  Country: US (occurrence: US)
  Receive Date: 20130319
  Receipt Date: 20130319
  Transmission Date: 20140127
  Serious: Yes (Other)
  Sender: FDA-Public Use
  Company Number: US-JNJFOC-20130308076

PATIENT
  Age: 69 Year
  Sex: Female
  Weight: 89.36 kg

DRUGS (3)
  1. EXTRA STRENGTH TYLENOL EZ TABS [Suspect]
     Indication: ARTHRALGIA
     Route: 048
     Dates: start: 20130306, end: 20130307
  2. BETA-BLOCKER, NOS [Concomitant]
     Indication: BLOOD DISORDER
     Route: 065
  3. WARFARIN [Concomitant]
     Route: 065
     Dates: start: 2009

REACTIONS (3)
  - Rectal haemorrhage [Recovered/Resolved]
  - Vaginal haemorrhage [Recovered/Resolved]
  - Expired drug administered [Unknown]
